FAERS Safety Report 7904989-5 (Version None)
Quarter: 2011Q4

REPORT INFORMATION
  Report Type: 
  Country: None (occurrence: None)
  Receive Date: 20111109
  Receipt Date: 20111102
  Transmission Date: 20120403
  Serious: Yes (Hospitalization)
  Sender: FDA-Public Use
  Company Number: PHEH2011US008550

PATIENT
  Age: 70 Year
  Sex: Female
  Weight: 63.492 kg

DRUGS (1)
  1. TOBI [Suspect]
     Indication: CYSTIC FIBROSIS
     Dosage: 300 MG, BID, VIA NEBULIZER IN A CYCLE OF 28 DAYS ON AND 28 DAYS OFF
     Dates: start: 20110425

REACTIONS (1)
  - PSEUDOMONAS INFECTION [None]
